FAERS Safety Report 13384209 (Version 1)
Quarter: 2017Q1

REPORT INFORMATION
  Report Type: Spontaneous
  Country: US (occurrence: US)
  Receive Date: 20170329
  Receipt Date: 20170329
  Transmission Date: 20170429
  Serious: No
  Sender: FDA-Public Use
  Company Number: US-MYLANLABS-2016M1047212

PATIENT
  Sex: Female
  Weight: 62.59 kg

DRUGS (3)
  1. EMSAM [Suspect]
     Active Substance: SELEGILINE
     Indication: DEPRESSION
     Dosage: 6 MG, QD, CHANGES QD
     Route: 062
  2. EMSAM [Suspect]
     Active Substance: SELEGILINE
     Indication: DEPRESSION
     Dosage: 12 MG, QD, CHANGES Q. 24 HOURS
     Route: 062
  3. CLOBETASOL [Concomitant]
     Active Substance: CLOBETASOL
     Indication: INFLAMMATION
     Dosage: UNK
     Route: 061

REACTIONS (7)
  - Reaction to drug excipients [Not Recovered/Not Resolved]
  - Application site pruritus [Recovered/Resolved]
  - Application site reaction [Recovered/Resolved]
  - Application site rash [Recovered/Resolved]
  - Drug effect increased [Not Recovered/Not Resolved]
  - Application site pain [Recovered/Resolved]
  - Application site injury [Not Recovered/Not Resolved]

NARRATIVE: CASE EVENT DATE: 2016
